FAERS Safety Report 18581069 (Version 1)
Quarter: 2020Q4

REPORT INFORMATION
  Report Type: Spontaneous
  Country: CN (occurrence: CN)
  Receive Date: 20201204
  Receipt Date: 20201204
  Transmission Date: 20210114
  Serious: Yes (Hospitalization)
  Sender: FDA-Public Use
  Company Number: CN-ASTRAZENECA-2020SF60401

PATIENT
  Age: 12 Year
  Sex: Female
  Weight: 54 kg

DRUGS (5)
  1. ARIPIPRAZOLE. [Concomitant]
     Active Substance: ARIPIPRAZOLE
  2. OLANZAPINE. [Suspect]
     Active Substance: OLANZAPINE
     Indication: AFFECTIVE DISORDER
     Dosage: 2.5 MG DAILY AT NIGHT
     Route: 048
     Dates: start: 20201105, end: 20201120
  3. GLYCYRRHIZIN [Concomitant]
     Active Substance: GLYCYRRHIZIN
     Indication: LIVER DISORDER
  4. SEROQUEL [Suspect]
     Active Substance: QUETIAPINE FUMARATE
     Indication: AFFECTIVE DISORDER
     Dosage: 25 MG DAILY AT NIGHT
     Route: 048
     Dates: start: 20201102, end: 20201105
  5. LUVOX [Concomitant]
     Active Substance: FLUVOXAMINE MALEATE
     Indication: AFFECTIVE DISORDER
     Dosage: 100 MG DAILY AT NIGHT
     Route: 048
     Dates: start: 20201031, end: 20201126

REACTIONS (4)
  - Hepatic enzyme increased [Recovering/Resolving]
  - Palpitations [Recovering/Resolving]
  - Hyperuricaemia [Recovering/Resolving]
  - Dizziness [Recovering/Resolving]

NARRATIVE: CASE EVENT DATE: 20201105
